FAERS Safety Report 6592912-8 (Version None)
Quarter: 2010Q1

REPORT INFORMATION
  Report Type: 
  Country: None (occurrence: None)
  Receive Date: 20100218
  Receipt Date: 20100218
  Transmission Date: 20100710
  Serious: No
  Sender: FDA-Public Use
  Company Number: None

PATIENT
  Age: 77 Year
  Sex: Male
  Weight: 81.05 kg

DRUGS (1)
  1. CAPECITABINE [Suspect]
     Indication: CHEMOTHERAPY
     Dosage: 2000 MG EVERY DAY PO
     Route: 048
     Dates: start: 20090121

REACTIONS (2)
  - PRURITUS [None]
  - RASH [None]
